FAERS Safety Report 6710501-9 (Version None)
Quarter: 2010Q2

REPORT INFORMATION
  Report Type: 
  Country: None (occurrence: None)
  Receive Date: 20100504
  Receipt Date: 20100419
  Transmission Date: 20101027
  Serious: Yes (Other)
  Sender: FDA-Public Use
  Company Number: NL-WYE-G05995810

PATIENT
  Sex: Female
  Weight: 50 kg

DRUGS (1)
  1. EFFEXOR XR [Suspect]
     Dosage: STARTED SEVERAL YEARS AGO, DOSE 150 MG/DAY, THEN 75 MG/DAY, NOW 37.5 MG/DAY

REACTIONS (5)
  - BLOOD CHOLESTEROL INCREASED [None]
  - DRUG DEPENDENCE [None]
  - DRUG WITHDRAWAL SYNDROME [None]
  - HYPERTENSION [None]
  - MALAISE [None]
